FAERS Safety Report 14844054 (Version 8)
Quarter: 2018Q3

REPORT INFORMATION
  Report Type: Report from Study
  Country: None (occurrence: GB)
  Receive Date: 20180503
  Receipt Date: 20180719
  Transmission Date: 20181010
  Serious: Yes (Life-Threatening, Hospitalization, Disabling, Other)
  Sender: FDA-Public Use
  Company Number: GB-ABBVIE-18P-167-2341083-00

PATIENT
  Age: 17 Year
  Sex: Female

DRUGS (11)
  1. AZATHIOPRINE. [Suspect]
     Active Substance: AZATHIOPRINE
     Route: 048
     Dates: start: 20171020
  2. OMEPRAZOLE. [Concomitant]
     Active Substance: OMEPRAZOLE
     Indication: CROHN^S DISEASE
     Dosage: 20?40 MG VIA JEJUNOSTOMY
     Dates: start: 20171226, end: 20180427
  3. HUMIRA [Suspect]
     Active Substance: ADALIMUMAB
     Route: 058
     Dates: start: 20170927, end: 20171018
  4. HUMIRA [Suspect]
     Active Substance: ADALIMUMAB
     Route: 058
     Dates: start: 20171025, end: 20171206
  5. DICLOVERINE HYDROCHOLORIDE [Concomitant]
     Indication: GASTROINTESTINAL PAIN
     Route: 050
     Dates: start: 20171212
  6. AZATHIOPRINE. [Suspect]
     Active Substance: AZATHIOPRINE
     Indication: CROHN^S DISEASE
     Route: 048
     Dates: start: 20160601, end: 20170130
  7. CO?CARELDOPA [Concomitant]
     Active Substance: CARBIDOPA\LEVODOPA
     Indication: MUSCLE SPASMS
     Dosage: 2.5?12ML
     Route: 048
     Dates: start: 20170215
  8. HUMIRA [Suspect]
     Active Substance: ADALIMUMAB
     Route: 058
     Dates: start: 20171220, end: 20180228
  9. OMEPRAZOLE. [Concomitant]
     Active Substance: OMEPRAZOLE
     Dosage: 20 MG VIA PEG GASTROSTOMY
     Dates: start: 20180501
  10. HUMIRA [Suspect]
     Active Substance: ADALIMUMAB
     Indication: CROHN^S DISEASE
     Route: 058
     Dates: start: 20151011, end: 20170612
  11. HUMIRA [Suspect]
     Active Substance: ADALIMUMAB
     Route: 058
     Dates: start: 20170613, end: 20170921

REACTIONS (2)
  - Intestinal obstruction [Recovered/Resolved]
  - Peritonitis [Unknown]

NARRATIVE: CASE EVENT DATE: 201804
